FAERS Safety Report 5831177-9 (Version None)
Quarter: 2008Q3

REPORT INFORMATION
  Report Type: 
  Country: None (occurrence: None)
  Receive Date: 20080801
  Receipt Date: 20080513
  Transmission Date: 20090109
  Serious: No
  Sender: FDA-Public Use
  Company Number: US-BRISTOL-MYERS SQUIBB COMPANY-14190797

PATIENT
  Age: 94 Year
  Sex: Female
  Weight: 59 kg

DRUGS (7)
  1. WARFARIN SODIUM [Suspect]
     Indication: ATRIAL FIBRILLATION
     Dosage: 1 DOSAGE FORM = 1MG-4MG DAILY
     Dates: start: 20080329
  2. WARFARIN SODIUM [Suspect]
     Indication: TRANSIENT ISCHAEMIC ATTACK
     Dosage: 1 DOSAGE FORM = 1MG-4MG DAILY
     Dates: start: 20080329
  3. ALCOHOL [Suspect]
  4. CALCIUM [Concomitant]
  5. NIACIN [Concomitant]
  6. LOPRESSOR [Concomitant]
     Dates: end: 20080501
  7. CARTIA XT [Concomitant]
     Dates: start: 20080501

REACTIONS (1)
  - INTERNATIONAL NORMALISED RATIO FLUCTUATION [None]
